FAERS Safety Report 10627691 (Version 4)
Quarter: 2015Q1

REPORT INFORMATION
  Report Type: Report from Study
  Country: US (occurrence: US)
  Receive Date: 20141205
  Receipt Date: 20150328
  Transmission Date: 20150720
  Serious: Yes (Hospitalization)
  Sender: FDA-Public Use
  Company Number: US-BIOGENIDEC-2014BI106685

PATIENT
  Age: 65 Year
  Sex: Male

DRUGS (2)
  1. AVONEX [Suspect]
     Active Substance: INTERFERON BETA-1A
     Indication: MULTIPLE SCLEROSIS
     Route: 030
     Dates: start: 20140404
  2. AVONEX [Suspect]
     Active Substance: INTERFERON BETA-1A
     Indication: MULTIPLE SCLEROSIS
     Route: 030
     Dates: start: 20030316

REACTIONS (10)
  - Drug dose omission [Recovered/Resolved]
  - Adverse event [Unknown]
  - Prostate cancer [Recovered/Resolved]
  - Urinary retention postoperative [Unknown]
  - Urinary incontinence [Not Recovered/Not Resolved]
  - Post procedural complication [Not Recovered/Not Resolved]
  - Gait disturbance [Unknown]
  - Hypoaesthesia [Unknown]
  - Muscular weakness [Unknown]
  - Obstructive uropathy [Recovered/Resolved]

NARRATIVE: CASE EVENT DATE: 2014
